FAERS Safety Report 9716308 (Version 2)
Quarter: 2014Q1

REPORT INFORMATION
  Report Type: Spontaneous
  Country: JP (occurrence: JP)
  Receive Date: 20131127
  Receipt Date: 20140123
  Transmission Date: 20141002
  Serious: No
  Sender: FDA-Public Use
  Company Number: JP-AMGEN-JPNSP2013083054

PATIENT
  Age: 6 Decade
  Sex: Female

DRUGS (1)
  1. RANMARK [Suspect]
     Indication: METASTASES TO BONE
     Dosage: UNK
     Route: 058

REACTIONS (1)
  - Dental caries [Unknown]
